FAERS Safety Report 9747696 (Version 1)
Quarter: 2013Q4

REPORT INFORMATION
  Report Type: Spontaneous
  Country: JP (occurrence: None)
  Receive Date: 20131206
  Receipt Date: 20131206
  Transmission Date: 20140711
  Serious: Yes (Hospitalization)
  Sender: FDA-Public Use
  Company Number: AXC-2013-000642

PATIENT
  Sex: 0
  Weight: 2 kg

DRUGS (2)
  1. URSODEOXYCHOLIC ACID [Suspect]
     Indication: FOETAL EXPOSURE DURING PREGNANCY
     Route: 064
  2. RITODRINE HYDROCHLORIDE (RITODRINE HYDROCHLORIDE) [Concomitant]

REACTIONS (4)
  - Premature baby [None]
  - Total bile acids increased [None]
  - Meconium stain [None]
  - Maternal drugs affecting foetus [None]
